FAERS Safety Report 18773767 (Version 1)
Quarter: 2021Q1

REPORT INFORMATION
  Report Type: Report from Study
  Country: AR (occurrence: AR)
  Receive Date: 20210122
  Receipt Date: 20210122
  Transmission Date: 20210419
  Serious: Yes (Hospitalization, Other)
  Sender: FDA-Public Use
  Company Number: AR-JNJFOC-20210126963

PATIENT
  Age: 72 Year
  Sex: Female
  Weight: 58 kg

DRUGS (1)
  1. SIMPONI [Suspect]
     Active Substance: GOLIMUMAB
     Indication: RHEUMATOID ARTHRITIS
     Route: 058
     Dates: start: 20151017

REACTIONS (2)
  - COVID-19 [Unknown]
  - Uveitis [Unknown]

NARRATIVE: CASE EVENT DATE: 20210103
